FAERS Safety Report 9365754 (Version 1)
Quarter: 2013Q2

REPORT INFORMATION
  Report Type: Spontaneous
  Country: US (occurrence: US)
  Receive Date: 20130625
  Receipt Date: 20130625
  Transmission Date: 20140414
  Serious: Yes (Other)
  Sender: FDA-Public Use
  Company Number: US-BAYER-2013-075002

PATIENT
  Age: 20 Year
  Sex: Female

DRUGS (2)
  1. BEYAZ [Suspect]
     Indication: ACNE
     Dosage: UNK
     Dates: start: 2011
  2. LEXAPRO [Concomitant]

REACTIONS (1)
  - Cholelithiasis [Recovered/Resolved]
